FAERS Safety Report 8540095-7 (Version None)
Quarter: 2012Q3

REPORT INFORMATION
  Report Type: 
  Country: None (occurrence: None)
  Receive Date: 20120726
  Receipt Date: 20120724
  Transmission Date: 20120928
  Serious: Yes (Other)
  Sender: FDA-Public Use
  Company Number: PHEH2012US014567

PATIENT
  Age: 80 Year
  Sex: Female
  Weight: 52.154 kg

DRUGS (1)
  1. EXELON [Suspect]
     Indication: DEMENTIA ALZHEIMER'S TYPE
     Dosage: 9.5 MG, QD
     Route: 062

REACTIONS (3)
  - FALL [None]
  - WEIGHT DECREASED [None]
  - PERIORBITAL HAEMATOMA [None]
